FAERS Safety Report 8340602-3 (Version None)
Quarter: 2012Q1

REPORT INFORMATION
  Report Type: 
  Country: None (occurrence: None)
  Receive Date: 20120329
  Receipt Date: 20091006
  Transmission Date: 20120608
  Serious: Yes (Other)
  Sender: FDA-Public Use
  Company Number: PHEH2009US13303

PATIENT
  Sex: Female

DRUGS (2)
  1. EXELON [Suspect]
     Indication: DEMENTIA ALZHEIMER'S TYPE
     Dosage: 9.5 MG,QD,  TRANSDERMAL
  2. EXELON [Suspect]
     Indication: DEMENTIA
     Dosage: 9.5 MG,QD,  TRANSDERMAL

REACTIONS (1)
  - CONFUSIONAL STATE [None]
